FAERS Safety Report 8508637-5 (Version None)
Quarter: 2012Q3

REPORT INFORMATION
  Report Type: 
  Country: None (occurrence: None)
  Receive Date: 20120713
  Receipt Date: 20120705
  Transmission Date: 20120928
  Serious: Yes (Hospitalization)
  Sender: FDA-Public Use
  Company Number: US-US-EMD SERONO, INC.-7146108

PATIENT
  Sex: Female

DRUGS (1)
  1. REBIF [Suspect]
     Indication: PRODUCT USED FOR UNKNOWN INDICATION
     Route: 058
     Dates: start: 20110629

REACTIONS (4)
  - TRIGEMINAL NEURALGIA [None]
  - INJECTION SITE HAEMATOMA [None]
  - HERPES ZOSTER [None]
  - INJECTION SITE PAIN [None]
